FAERS Safety Report 15852847 (Version 1)
Quarter: 2019Q1

REPORT INFORMATION
  Report Type: Spontaneous
  Country: FR (occurrence: FR)
  Receive Date: 20190122
  Receipt Date: 20190122
  Transmission Date: 20190417
  Serious: Yes (Life-Threatening)
  Sender: FDA-Public Use
  Company Number: FR-BAUSCH-BL-2019-001493

PATIENT
  Age: 70 Year
  Sex: Female
  Weight: 66 kg

DRUGS (16)
  1. METFORMINE [Suspect]
     Active Substance: METFORMIN HYDROCHLORIDE
     Indication: TYPE 2 DIABETES MELLITUS
     Route: 048
     Dates: start: 2007, end: 20181215
  2. LACTULOSE. [Suspect]
     Active Substance: LACTULOSE
     Indication: CONSTIPATION
     Route: 048
     Dates: end: 20181215
  3. TARDYFERON [Suspect]
     Active Substance: FERROUS SULFATE
     Indication: PRODUCT USED FOR UNKNOWN INDICATION
     Route: 048
     Dates: end: 20181215
  4. BISOCE [Concomitant]
     Active Substance: BISOPROLOL
     Indication: PRODUCT USED FOR UNKNOWN INDICATION
     Dosage: COATED TABLET
  5. DICODIN LP [Suspect]
     Active Substance: DIHYDROCODEINE
     Indication: PAIN
     Route: 048
     Dates: start: 2018, end: 20181215
  6. JANUMET [Suspect]
     Active Substance: METFORMIN HYDROCHLORIDE\SITAGLIPTIN PHOSPHATE
     Indication: TYPE 2 DIABETES MELLITUS
     Dosage: 50 MG/1000 MG COATED TABLET
     Route: 048
     Dates: start: 2009, end: 20181215
  7. LAROXYL [Suspect]
     Active Substance: AMITRIPTYLINE HYDROCHLORIDE
     Indication: DEPRESSION
     Dosage: COATED TABLET
     Route: 048
     Dates: end: 20181215
  8. EUPANTOL [Concomitant]
     Active Substance: PANTOPRAZOLE SODIUM
     Indication: PRODUCT USED FOR UNKNOWN INDICATION
  9. PARACETAMOL [Suspect]
     Active Substance: ACETAMINOPHEN
     Indication: PAIN
     Route: 048
     Dates: start: 2018, end: 20181215
  10. IBUPROFENE [Suspect]
     Active Substance: IBUPROFEN
     Indication: BACK PAIN
     Route: 048
     Dates: start: 20181204, end: 20181209
  11. ALPRAZOLAM. [Suspect]
     Active Substance: ALPRAZOLAM
     Indication: DEPRESSION
     Route: 048
     Dates: end: 20181215
  12. PRAVASTATINE SODIUM [Concomitant]
     Active Substance: PRAVASTATIN SODIUM
     Indication: PRODUCT USED FOR UNKNOWN INDICATION
  13. LETROZOLE. [Suspect]
     Active Substance: LETROZOLE
     Indication: BREAST CANCER
     Route: 048
     Dates: start: 2015, end: 20181215
  14. THERALENE [Suspect]
     Active Substance: TRIMEPRAZINE
     Indication: DEPRESSION
     Dosage: 5 TO 10 DROPS A DAY
     Route: 048
     Dates: end: 20181215
  15. TRANXENE [Concomitant]
     Active Substance: CLORAZEPATE DIPOTASSIUM
     Indication: PRODUCT USED FOR UNKNOWN INDICATION
  16. ACIDE FOLIQUE [Suspect]
     Active Substance: FOLIC ACID
     Indication: PRODUCT USED FOR UNKNOWN INDICATION
     Route: 048
     Dates: start: 2015, end: 20181215

REACTIONS (5)
  - Vomiting [Recovered/Resolved]
  - Hyperkalaemia [Recovered/Resolved]
  - Nausea [Recovered/Resolved]
  - Acute kidney injury [Recovered/Resolved]
  - Lactic acidosis [Recovered/Resolved]

NARRATIVE: CASE EVENT DATE: 20181209
